FAERS Safety Report 17483337 (Version 1)
Quarter: 2020Q1

REPORT INFORMATION
  Report Type: Report from Study
  Country: US (occurrence: US)
  Receive Date: 20200302
  Receipt Date: 20200302
  Transmission Date: 20200409
  Serious: Yes (Other)
  Sender: FDA-Public Use
  Company Number: US-MYLANLABS-2020M1006446

PATIENT
  Age: 33 Year
  Sex: Female
  Weight: 77.11 kg

DRUGS (3)
  1. METOPROLOL. [Concomitant]
     Active Substance: METOPROLOL
     Indication: ARRHYTHMIA
     Dosage: UNK
  2. GLATIRAMER ACETATE INJECTION [Suspect]
     Active Substance: GLATIRAMER ACETATE
     Indication: RELAPSING-REMITTING MULTIPLE SCLEROSIS
     Dosage: 40 MILLIGRAM, 3XW
     Route: 058
     Dates: start: 20200103, end: 20200120
  3. SERTRALINE [Concomitant]
     Active Substance: SERTRALINE HYDROCHLORIDE
     Dosage: UNK

REACTIONS (20)
  - Sinusitis [Recovered/Resolved]
  - Chills [Unknown]
  - Injection site erythema [Not Recovered/Not Resolved]
  - Cough [Recovered/Resolved]
  - Accidental exposure to product [Recovered/Resolved]
  - Primary progressive multiple sclerosis [Unknown]
  - Vomiting [Unknown]
  - Injection site pruritus [Recovering/Resolving]
  - Pyrexia [Unknown]
  - Injection site swelling [Not Recovered/Not Resolved]
  - Palpitations [Recovered/Resolved]
  - Weight increased [Unknown]
  - Gait disturbance [Recovered/Resolved]
  - Neck pain [Recovered/Resolved]
  - Injection site pain [Not Recovered/Not Resolved]
  - Anxiety [Recovering/Resolving]
  - Bladder disorder [Not Recovered/Not Resolved]
  - Anal incontinence [Not Recovered/Not Resolved]
  - Chest pain [Recovered/Resolved]
  - Dyspnoea [Recovered/Resolved]

NARRATIVE: CASE EVENT DATE: 202001
